FAERS Safety Report 21688042 (Version 1)
Quarter: 2022Q4

REPORT INFORMATION
  Report Type: Spontaneous
  Country: CN (occurrence: CN)
  Receive Date: 20221206
  Receipt Date: 20221206
  Transmission Date: 20230113
  Serious: Yes (Other)
  Sender: FDA-Public Use
  Company Number: CN-002147023-NVSC2022CN279532

PATIENT
  Age: 49 Year
  Sex: Female
  Weight: 65 kg

DRUGS (4)
  1. OCTREOTIDE ACETATE [Suspect]
     Active Substance: OCTREOTIDE ACETATE
     Indication: Upper gastrointestinal haemorrhage
     Dosage: 0.300000 MG (PUMP INJECTION)
     Route: 065
     Dates: start: 20221121, end: 20221121
  2. OCTREOTIDE ACETATE [Suspect]
     Active Substance: OCTREOTIDE ACETATE
  3. OCTREOTIDE ACETATE [Suspect]
     Active Substance: OCTREOTIDE ACETATE
  4. SODIUM CHLORIDE [Suspect]
     Active Substance: SODIUM CHLORIDE
     Indication: Upper gastrointestinal haemorrhage
     Dosage: UNK UNK, QD (2 ML/H)
     Route: 065
     Dates: start: 20221121, end: 20221121

REACTIONS (4)
  - Syncope [Recovering/Resolving]
  - Tremor [Recovering/Resolving]
  - Seizure [Recovering/Resolving]
  - Confusional state [Recovering/Resolving]

NARRATIVE: CASE EVENT DATE: 20221121
